FAERS Safety Report 16663469 (Version 1)
Quarter: 2019Q3

REPORT INFORMATION
  Report Type: Spontaneous
  Country: US (occurrence: US)
  Receive Date: 20190802
  Receipt Date: 20190802
  Transmission Date: 20191004
  Serious: Yes (Other)
  Sender: FDA-Public Use
  Company Number: US-SILVERGATE PHARMACEUTICALS, INC.-2019SIL00042

PATIENT
  Age: 69 Year
  Sex: Male
  Weight: 116 kg

DRUGS (8)
  1. METHOTREXATE. [Suspect]
     Active Substance: METHOTREXATE
     Dosage: 10 MG, 2X/WEEK
     Route: 048
  2. CEFTRIAXONE. [Suspect]
     Active Substance: CEFTRIAXONE
     Indication: ARTHRITIS INFECTIVE
     Route: 065
  3. METHOTREXATE. [Suspect]
     Active Substance: METHOTREXATE
     Dosage: 10 MG, 2X/WEEK (POD 8 TO POD 14; 3 DOSES)
  4. METHOTREXATE. [Suspect]
     Active Substance: METHOTREXATE
     Indication: PSORIATIC ARTHROPATHY
     Dosage: 10 MG, 2X/WEEK (WEDNESDAYS, SATURDAYS)
     Route: 048
  5. CEFTRIAXONE. [Suspect]
     Active Substance: CEFTRIAXONE
     Dosage: 2 G, 1X/DAY (POD 1)
     Route: 042
  6. CEFTRIAXONE. [Suspect]
     Active Substance: CEFTRIAXONE
     Dosage: 2 G, 1X/DAY (POD 4 TO POD 14; 12 DOSES)
     Route: 065
  7. METHOTREXATE. [Suspect]
     Active Substance: METHOTREXATE
     Dosage: 10 MG, 2X/WEEK 10 MG, 2X/WEEK (WEDNESDAYS, SATURDAYS)
     Route: 048
  8. METHOTREXATE. [Suspect]
     Active Substance: METHOTREXATE
     Dosage: 10 MG, ONCE (POD 1)
     Route: 048

REACTIONS (2)
  - Neutropenia [Recovered/Resolved]
  - Drug interaction [Recovered/Resolved]
